FAERS Safety Report 12394436 (Version 1)
Quarter: 2016Q2

REPORT INFORMATION
  Report Type: Spontaneous
  Country: US (occurrence: US)
  Receive Date: 20160523
  Receipt Date: 20160523
  Transmission Date: 20160815
  Serious: No
  Sender: FDA-Public Use
  Company Number: US-TARO-2016TAR00038

PATIENT
  Age: 11 Year
  Sex: Male
  Weight: 36.28 kg

DRUGS (6)
  1. CHILDRENS CETIRIZINE HYDROCHLORIDE SUGAR FREE GRAPE [Suspect]
     Active Substance: CETIRIZINE HYDROCHLORIDE
     Indication: HYPERSENSITIVITY
     Dosage: 2.5 ML, 2X/DAY
     Route: 048
     Dates: start: 20150112, end: 20160112
  2. CHILDRENS CETIRIZINE HYDROCHLORIDE SUGAR FREE GRAPE [Suspect]
     Active Substance: CETIRIZINE HYDROCHLORIDE
     Dosage: 2.5 ML, 2X/DAY
     Route: 048
     Dates: start: 201601
  3. MAGNESIUM [Concomitant]
     Active Substance: MAGNESIUM
  4. FLAXSEED [Concomitant]
     Active Substance: FLAX SEED
  5. GAVA [Concomitant]
  6. ZANTAC [Concomitant]
     Active Substance: RANITIDINE HYDROCHLORIDE

REACTIONS (4)
  - Renal disorder [Unknown]
  - Blood pressure increased [Not Recovered/Not Resolved]
  - Anxiety [Recovering/Resolving]
  - Headache [Not Recovered/Not Resolved]

NARRATIVE: CASE EVENT DATE: 201601
